FAERS Safety Report 9976024 (Version 1)
Quarter: 2014Q1

REPORT INFORMATION
  Report Type: Spontaneous
  Country: US (occurrence: US)
  Receive Date: 20140306
  Receipt Date: 20140306
  Transmission Date: 20141002
  Serious: Yes (Other)
  Sender: FDA-Public Use
  Company Number: US-ACTAVIS-2014-03596

PATIENT
  Age: 63 Year
  Sex: Male

DRUGS (3)
  1. PACLITAXEL (ATLLC) (PACLITAXEL) UNK, UNKUNK [Suspect]
     Indication: LUNG ADENOCARCINOMA STAGE III
     Dosage: 175 MG/M2, 1/ THREE WEEKS, 6 CYCLES
     Route: 065
  2. CARBOPLATIN [Concomitant]
     Indication: LUNG ADENOCARCINOMA STAGE III
     Dosage: UNK, EVERY 3 WEEKS, 6 CYCLES
     Route: 065
  3. BEVACIZUMAB [Concomitant]
     Indication: LUNG ADENOCARCINOMA STAGE III
     Dosage: 7.5 MG/KG, 1/ THREE WEEKS, 6 CYCLES
     Route: 065

REACTIONS (1)
  - Colorectal adenocarcinoma [Recovered/Resolved]
